FAERS Safety Report 8772626 (Version 3)
Quarter: 2012Q4

REPORT INFORMATION
  Report Type: 
  Country: BE (occurrence: BE)
  Receive Date: 20120830
  Receipt Date: 20121024
  Transmission Date: 20130627
  Serious: Yes (Hospitalization, Other)
  Sender: FDA-Public Use
  Company Number: BE-ELI_LILLY_AND_COMPANY-BE201208008344

PATIENT
  Age: 83 Year
  Sex: Female

DRUGS (12)
  1. FORSTEO [Suspect]
     Indication: OSTEOPOROSIS
     Dosage: 20 ug, qd
     Dates: start: 20120720
  2. PROPAFENONE [Concomitant]
     Dosage: 150 mg, tid
  3. NEBIVOLOL [Concomitant]
     Dosage: 2.5 mg, qd
  4. ZANTAC [Concomitant]
     Dosage: UNK, prn
  5. ZANTAC [Concomitant]
     Dosage: 150 mg, qd
  6. ZALDIAR [Concomitant]
     Dosage: UNK, prn
  7. ZALDIAR [Concomitant]
     Dosage: UNK, qd
     Route: 048
  8. AERIUS [Concomitant]
     Dosage: 5 mg, qd
     Route: 048
  9. ASAFLOW [Concomitant]
     Dosage: 80 mg, qd
     Route: 048
  10. NOBITEN [Concomitant]
     Dosage: 5 mg, qd
     Route: 065
  11. RYTMONORM [Concomitant]
     Dosage: 150 mg, tid
     Route: 048
  12. SERETIDE [Concomitant]
     Dosage: UNK, qd

REACTIONS (1)
  - Adenocarcinoma of colon [Unknown]
